FAERS Safety Report 6455535-7 (Version None)
Quarter: 2009Q4

REPORT INFORMATION
  Report Type: 
  Country: None (occurrence: None)
  Receive Date: 20091125
  Receipt Date: 20090925
  Transmission Date: 20100525
  Serious: No
  Sender: FDA-Public Use
  Company Number: US-ABBOTT-09P-163-0599958-00

PATIENT
  Age: 49 Year
  Sex: Female
  Weight: 72.64 kg

DRUGS (3)
  1. SIMCOR [Suspect]
     Indication: BLOOD CHOLESTEROL INCREASED
     Dosage: 500/20MG
     Route: 048
     Dates: start: 20081001, end: 20090401
  2. SIMCOR [Suspect]
     Indication: HYPERTRIGLYCERIDAEMIA
     Dosage: 1 GRAM/20MG
     Route: 048
     Dates: start: 20090401, end: 20090923
  3. ASPIRIN [Concomitant]
     Indication: DRUG USE FOR UNKNOWN INDICATION
     Route: 048

REACTIONS (9)
  - ASTHENIA [None]
  - FLUSHING [None]
  - INITIAL INSOMNIA [None]
  - JOINT RANGE OF MOTION DECREASED [None]
  - MUSCULAR WEAKNESS [None]
  - PARAESTHESIA [None]
  - PARAESTHESIA ORAL [None]
  - PRURITUS [None]
  - TONGUE DISORDER [None]
